FAERS Safety Report 11924936 (Version 1)
Quarter: 2016Q1

REPORT INFORMATION
  Report Type: Spontaneous
  Country: DE (occurrence: DE)
  Receive Date: 20160118
  Receipt Date: 20160118
  Transmission Date: 20160526
  Serious: Yes (Death, Hospitalization)
  Sender: FDA-Public Use
  Company Number: DE-BRACCO-002093

PATIENT
  Age: 81 Year
  Sex: Male

DRUGS (1)
  1. PROHANCE [Suspect]
     Active Substance: GADOTERIDOL
     Indication: NUCLEAR MAGNETIC RESONANCE IMAGING
     Route: 042
     Dates: start: 20151222, end: 20151222

REACTIONS (12)
  - Respiratory arrest [Fatal]
  - Bundle branch block left [Fatal]
  - Chronic kidney disease [Fatal]
  - Multiple organ dysfunction syndrome [Fatal]
  - Brain injury [Fatal]
  - Epilepsy [Fatal]
  - Asphyxia [Fatal]
  - Acute kidney injury [Fatal]
  - Sinoatrial block [Fatal]
  - Cardiac arrest [Fatal]
  - Pneumothorax [Fatal]
  - Septic shock [Fatal]

NARRATIVE: CASE EVENT DATE: 20151222
